FAERS Safety Report 20629381 (Version 2)
Quarter: 2022Q2

REPORT INFORMATION
  Report Type: Spontaneous
  Country: US (occurrence: US)
  Receive Date: 20220323
  Receipt Date: 20220407
  Transmission Date: 20220721
  Serious: Yes (Hospitalization)
  Sender: FDA-Public Use
  Company Number: US-TEVA-2022-US-2018931

PATIENT
  Age: 67 Year
  Sex: Male

DRUGS (1)
  1. DEXAMETHASONE [Suspect]
     Active Substance: DEXAMETHASONE
     Indication: COVID-19
     Dosage: 12 MILLIGRAM DAILY;
     Route: 065

REACTIONS (3)
  - Rhinocerebral mucormycosis [Recovered/Resolved]
  - Overdose [Unknown]
  - Off label use [Unknown]
